FAERS Safety Report 8090899-2 (Version None)
Quarter: 2012Q1

REPORT INFORMATION
  Report Type: 
  Country: None (occurrence: None)
  Receive Date: 20120131
  Receipt Date: 20111202
  Transmission Date: 20120608
  Serious: Yes (Hospitalization)
  Sender: FDA-Public Use
  Company Number: US-BAYER-201019422NA

PATIENT
  Age: 30 Year
  Sex: Female
  Weight: 61 kg

DRUGS (2)
  1. YASMIN [Suspect]
     Indication: CONTRACEPTION
     Route: 048
     Dates: start: 20010101, end: 20080718
  2. NSAID'S [Concomitant]

REACTIONS (9)
  - EMOTIONAL DISTRESS [None]
  - SPEECH DISORDER [None]
  - MUSCULAR WEAKNESS [None]
  - CEREBRAL HAEMORRHAGE [None]
  - MONOPLEGIA [None]
  - PULMONARY EMBOLISM [None]
  - CEREBRAL INFARCTION [None]
  - FATIGUE [None]
  - CEREBROVASCULAR ACCIDENT [None]
